FAERS Safety Report 8078589-3 (Version None)
Quarter: 2012Q1

REPORT INFORMATION
  Report Type: 
  Country: None (occurrence: None)
  Receive Date: 20120124
  Receipt Date: 20120113
  Transmission Date: 20120608
  Serious: Yes (Other)
  Sender: FDA-Public Use
  Company Number: DSJ-2012-00597

PATIENT
  Age: 8 Decade
  Sex: Male

DRUGS (3)
  1. ADONA (CARABAZOCHROME SODIUIM SULFONATE) (CARBAZOCHROME SODIUM SULFONA [Concomitant]
  2. OLMESARTAN MEDOXOMIL [Suspect]
     Indication: HYPERTENSION
     Dosage: 20 MG, PER ORAL
     Route: 048
     Dates: start: 20111206, end: 20120112
  3. KALLIKREIN (KALLIDOGENASE) [Concomitant]

REACTIONS (2)
  - PLATELET COUNT DECREASED [None]
  - HAEMORRHAGE [None]
